FAERS Safety Report 6577989-8 (Version None)
Quarter: 2010Q1

REPORT INFORMATION
  Report Type: 
  Country: None (occurrence: None)
  Receive Date: 20100211
  Receipt Date: 20100201
  Transmission Date: 20100710
  Serious: Yes (Death)
  Sender: FDA-Public Use
  Company Number: US-TEVA-223417USA

PATIENT
  Age: 25 Year
  Sex: Male

DRUGS (2)
  1. SERTRALINE HCL [Suspect]
     Route: 055
  2. METHADONE HCL [Suspect]
     Route: 055

REACTIONS (4)
  - BRAIN OEDEMA [None]
  - DRUG ABUSE [None]
  - DRUG INTERACTION [None]
  - PULMONARY OEDEMA [None]
